FAERS Safety Report 13517163 (Version 1)
Quarter: 2017Q2

REPORT INFORMATION
  Report Type: Spontaneous
  Country: US (occurrence: US)
  Receive Date: 20170505
  Receipt Date: 20170505
  Transmission Date: 20170830
  Serious: No
  Sender: FDA-Public Use
  Company Number: US-TEVA-707428USA

PATIENT
  Age: 64 Year
  Sex: Female

DRUGS (1)
  1. METOPROLOL SUCCINATE. [Suspect]
     Active Substance: METOPROLOL SUCCINATE
     Indication: HYPERTENSION
     Dates: start: 2016

REACTIONS (4)
  - Constipation [Unknown]
  - Swelling [Unknown]
  - Abdominal distension [Unknown]
  - Joint swelling [Unknown]
